FAERS Safety Report 6220097-6 (Version None)
Quarter: 2009Q2

REPORT INFORMATION
  Report Type: 
  Country: None (occurrence: None)
  Receive Date: 20090609
  Receipt Date: 20090527
  Transmission Date: 20091009
  Serious: Yes (Other)
  Sender: FDA-Public Use
  Company Number: IN-ELI_LILLY_AND_COMPANY-IN200905005261

PATIENT
  Age: 6 Year
  Sex: Female

DRUGS (1)
  1. HUMATROPE [Suspect]
     Indication: GROWTH HORMONE DEFICIENCY
     Dosage: 3 U, DAILY (1/D)
     Route: 058
     Dates: start: 20090522

REACTIONS (2)
  - GENERALISED OEDEMA [None]
  - YELLOW SKIN [None]
